FAERS Safety Report 5902135-0 (Version None)
Quarter: 2008Q3

REPORT INFORMATION
  Report Type: 
  Country: None (occurrence: None)
  Receive Date: 20080929
  Receipt Date: 20080917
  Transmission Date: 20090109
  Serious: Yes (Hospitalization, Other)
  Sender: FDA-Public Use
  Company Number: JP-PFIZER INC-2008079267

PATIENT
  Age: 65 Year
  Sex: Male

DRUGS (6)
  1. SOLU-MEDROL [Suspect]
     Indication: GLOMERULONEPHRITIS
     Route: 042
  2. NEORAL [Suspect]
     Indication: GLOMERULONEPHRITIS
     Route: 048
  3. ALL OTHER THERAPEUTIC PRODUCTS [Concomitant]
  4. PREDNISOLONE [Concomitant]
     Route: 048
  5. ALL OTHER THERAPEUTIC PRODUCTS [Concomitant]
  6. ALL OTHER THERAPEUTIC PRODUCTS [Concomitant]

REACTIONS (2)
  - DRUG INEFFECTIVE [None]
  - MENINGITIS HERPES [None]
